FAERS Safety Report 7105947 (Version 11)
Quarter: 2014Q4

REPORT INFORMATION
  Report Type: Spontaneous
  Country: US (occurrence: US)
  Receive Date: 20090904
  Receipt Date: 20141215
  Transmission Date: 20150529
  Serious: Yes (Hospitalization, Other)
  Sender: FDA-Public Use
  Company Number: US-ELI_LILLY_AND_COMPANY-US200908006112

PATIENT
  Age: 56 Year
  Sex: Female
  Weight: 72.11 kg

DRUGS (22)
  1. CYMBALTA [Suspect]
     Active Substance: DULOXETINE HYDROCHLORIDE
     Dosage: 60 MG, EACH EVENING
     Dates: start: 2008, end: 20081218
  2. ATIVAN [Concomitant]
     Active Substance: LORAZEPAM
  3. PROZAC [Suspect]
     Active Substance: FLUOXETINE HYDROCHLORIDE
     Indication: DEPRESSION
  4. NEXIUM [Concomitant]
     Active Substance: ESOMEPRAZOLE MAGNESIUM
     Dosage: 40 MG, 2/D
     Route: 048
  5. ADVAIR HFA [Concomitant]
     Active Substance: FLUTICASONE PROPIONATE\SALMETEROL XINAFOATE
     Indication: ASTHMA
     Dosage: 1 D/F, 2/D
     Route: 055
  6. TYLENOL                                 /SCH/ [Concomitant]
     Dosage: 500 MG, EVERY 6 HRS
  7. VICODIN [Concomitant]
     Active Substance: ACETAMINOPHEN\HYDROCODONE BITARTRATE
  8. GEODON [Concomitant]
     Active Substance: ZIPRASIDONE HYDROCHLORIDE\ZIPRASIDONE MESYLATE
     Dosage: 40 MG, 4/D
  9. WELLBUTRIN [Concomitant]
     Active Substance: BUPROPION HYDROCHLORIDE
     Dosage: UNK, UNKNOWN
     Route: 065
  10. CYMBALTA [Suspect]
     Active Substance: DULOXETINE HYDROCHLORIDE
     Dosage: 40 MG, UNK
     Dates: start: 20081218, end: 20081231
  11. CYMBALTA [Suspect]
     Active Substance: DULOXETINE HYDROCHLORIDE
     Dosage: 15 MG, UNK
     Dates: start: 20090115, end: 20090128
  12. XANAX [Concomitant]
     Active Substance: ALPRAZOLAM
     Indication: ANXIETY
     Dosage: 1 MG, 3/D
  13. GEODON [Concomitant]
     Active Substance: ZIPRASIDONE HYDROCHLORIDE\ZIPRASIDONE MESYLATE
     Dosage: 40 MG, 2/D
     Route: 048
  14. GEODON [Concomitant]
     Active Substance: ZIPRASIDONE HYDROCHLORIDE\ZIPRASIDONE MESYLATE
     Dosage: UNK, UNKNOWN
     Route: 065
  15. CYMBALTA [Suspect]
     Active Substance: DULOXETINE HYDROCHLORIDE
     Dosage: 30 MG, UNK
     Dates: start: 20090101, end: 20090114
  16. WELLBUTRIN [Concomitant]
     Active Substance: BUPROPION HYDROCHLORIDE
     Indication: DEPRESSION
     Dosage: 400 MG, UNKNOWN
     Route: 065
     Dates: start: 200907
  17. LEVOTHYROXINE [Concomitant]
     Active Substance: LEVOTHYROXINE
     Indication: HYPOTHYROIDISM
     Dosage: 112 UG, UNK
     Route: 048
  18. CYMBALTA [Suspect]
     Active Substance: DULOXETINE HYDROCHLORIDE
     Indication: DEPRESSION
     Dosage: 120 MG, DAILY (1/D)
     Dates: start: 200803, end: 2008
  19. GEODON [Concomitant]
     Active Substance: ZIPRASIDONE HYDROCHLORIDE\ZIPRASIDONE MESYLATE
     Dosage: 40 MG, 3/D
     Route: 048
  20. SINGULAIR [Concomitant]
     Active Substance: MONTELUKAST SODIUM
     Indication: ASTHMA
     Dosage: 10 MG, DAILY (1/D)
  21. ENABLEX                            /01760401/ [Concomitant]
     Active Substance: DARIFENACIN\DARIFENACIN HYDROBROMIDE
     Indication: INCONTINENCE
     Dosage: 15 MG, UNK
  22. EFFEXOR [Concomitant]
     Active Substance: VENLAFAXINE HYDROCHLORIDE
     Indication: DEPRESSION
     Dosage: 75 MG, 3/D

REACTIONS (28)
  - Abnormal behaviour [Recovered/Resolved]
  - Depressed mood [Recovered/Resolved]
  - Wrist fracture [Unknown]
  - Suicidal ideation [Unknown]
  - Drug clearance decreased [Unknown]
  - Malaise [Unknown]
  - Suicidal ideation [Recovered/Resolved]
  - Self injurious behaviour [Unknown]
  - Pain in extremity [Recovered/Resolved]
  - Disturbance in attention [Unknown]
  - Drug withdrawal syndrome [Recovered/Resolved]
  - Tremor [Not Recovered/Not Resolved]
  - Decreased activity [Not Recovered/Not Resolved]
  - Anger [Recovered/Resolved]
  - Anxiety [Not Recovered/Not Resolved]
  - Personality change [Unknown]
  - Thinking abnormal [Unknown]
  - Anxiety [Recovered/Resolved]
  - Road traffic accident [Recovered/Resolved]
  - Hepatic function abnormal [Recovered/Resolved]
  - Irritability [Unknown]
  - Sleep disorder [Unknown]
  - Abnormal behaviour [Unknown]
  - Suicidal ideation [Recovered/Resolved]
  - Drug effect increased [Unknown]
  - Drug ineffective [Unknown]
  - Feeling abnormal [Unknown]
  - Decreased appetite [Unknown]

NARRATIVE: CASE EVENT DATE: 2008
